FAERS Safety Report 25437639 (Version 2)
Quarter: 2025Q3

REPORT INFORMATION
  Report Type: Spontaneous
  Country: US (occurrence: US)
  Receive Date: 20250616
  Receipt Date: 20250702
  Transmission Date: 20251021
  Serious: Yes (Other)
  Sender: RADIUS PHARM
  Company Number: US-RADIUS HEALTH INC.-US-RADIUS-25049629

PATIENT
  Sex: Female

DRUGS (1)
  1. TYMLOS [Suspect]
     Active Substance: ABALOPARATIDE
     Indication: Product used for unknown indication
     Dosage: 80 MICROGRAM, QD
     Route: 065
     Dates: start: 202503, end: 20250605

REACTIONS (9)
  - Spinal fracture [Recovered/Resolved]
  - Nephrolithiasis [Unknown]
  - Vertebroplasty [Unknown]
  - Medical procedure [Unknown]
  - Muscular weakness [Unknown]
  - Urinary tract infection [Unknown]
  - Feeling abnormal [Unknown]
  - Back pain [Unknown]
  - Off label use [Unknown]

NARRATIVE: CASE EVENT DATE: 20250101
